FAERS Safety Report 4911261-4 (Version None)
Quarter: 2006Q1

REPORT INFORMATION
  Report Type: 
  Country: None (occurrence: None)
  Receive Date: 20060113
  Receipt Date: 20050408
  Transmission Date: 20060701
  Serious: No
  Sender: FDA-Public Use
  Company Number: HQWYE011713APR05

PATIENT
  Age: 52 Year
  Sex: Female
  Weight: 72.64 kg

DRUGS (1)
  1. PREMPRO [Suspect]
     Indication: HOT FLUSH
     Dosage: 0.3MG/1.5MG INITIALLY; 0.45MG/1.5MG DAILY, ORAL
     Route: 048
     Dates: start: 20041101

REACTIONS (3)
  - BLOOD PRESSURE INCREASED [None]
  - FEELING JITTERY [None]
  - HEART RATE INCREASED [None]
